FAERS Safety Report 6979580-8 (Version None)
Quarter: 2010Q3

REPORT INFORMATION
  Report Type: 
  Country: None (occurrence: None)
  Receive Date: 20100913
  Receipt Date: 20100901
  Transmission Date: 20110219
  Serious: Yes (Other)
  Sender: FDA-Public Use
  Company Number: US-BRACCO-005140

PATIENT
  Sex: Female
  Weight: 82 kg

DRUGS (2)
  1. GASTROGRAFIN [Suspect]
     Indication: BREAST CANCER METASTATIC
     Route: 048
     Dates: start: 20100808, end: 20100808
  2. GASTROGRAFIN [Suspect]
     Indication: COMPUTERISED TOMOGRAM
     Route: 048
     Dates: start: 20100808, end: 20100808

REACTIONS (6)
  - DUODENITIS [None]
  - DYSPEPSIA [None]
  - GASTRITIS [None]
  - PANCREATITIS [None]
  - PULMONARY EMBOLISM [None]
  - VOMITING [None]
